FAERS Safety Report 21679549 (Version 1)
Quarter: 2022Q4

REPORT INFORMATION
  Report Type: Report from Study
  Country: US (occurrence: US)
  Receive Date: 20221205
  Receipt Date: 20221205
  Transmission Date: 20230112
  Serious: No
  Sender: FDA-Public Use
  Company Number: US-ABBVIE-4221785

PATIENT
  Sex: Male

DRUGS (14)
  1. VENCLEXTA [Suspect]
     Active Substance: VENETOCLAX
     Indication: Chronic lymphocytic leukaemia
     Route: 048
  2. Pantoprazole Sodium Oral Tablet Del  40 mg [Concomitant]
     Indication: Product used for unknown indication
     Route: 065
  3. PARoxetine HCl Oral Tablet 20 MG [Concomitant]
     Indication: Product used for unknown indication
  4. Carvedilol Oral Tablet 3.125 MG [Concomitant]
     Indication: Product used for unknown indication
  5. Losartan Potassium Oral Tablet 100 mg [Concomitant]
     Indication: Product used for unknown indication
  6. tiZANidine HCl Oral Tablet 4 MG [Concomitant]
     Indication: Product used for unknown indication
  7. Gazyva Intravenous Solution 1000 MG [Concomitant]
     Indication: Product used for unknown indication
  8. Allopurinol Oral Tablet 300 MG [Concomitant]
     Indication: Product used for unknown indication
  9. Norvasc Oral Tablet 10 MG [Concomitant]
     Indication: Product used for unknown indication
  10. Lipitor Oral Tablet 20 MG [Concomitant]
     Indication: Product used for unknown indication
     Route: 048
  11. Prochlorperazine Maleate Oral Tablet [Concomitant]
     Indication: Product used for unknown indication
     Route: 048
  12. Eliquis Oral Tablet 5 MG [Concomitant]
     Indication: Product used for unknown indication
     Route: 048
  13. Baraclude Oral Tablet 1 MG [Concomitant]
     Indication: Product used for unknown indication
     Route: 048
  14. Cetirizine HCl Oral Tablet 10 MG [Concomitant]
     Indication: Product used for unknown indication
     Route: 048

REACTIONS (1)
  - Diarrhoea [Unknown]
